FAERS Safety Report 9983161 (Version 1)
Quarter: 2014Q1

REPORT INFORMATION
  Report Type: Report from Study
  Country: US (occurrence: US)
  Receive Date: 20140307
  Receipt Date: 20140307
  Transmission Date: 20141002
  Serious: No
  Sender: FDA-Public Use
  Company Number: US-ABBVIE-13P-163-1178053-00

PATIENT
  Age: 63 Year
  Sex: Female

DRUGS (10)
  1. HUMIRA [Suspect]
     Indication: COLITIS ULCERATIVE
     Dates: start: 20131103, end: 20131103
  2. HUMIRA [Suspect]
     Dates: start: 20131117, end: 20131117
  3. HUMIRA [Suspect]
     Dates: start: 20131201
  4. DELZICOL [Concomitant]
     Indication: COLITIS ULCERATIVE
  5. LEVOTHYROXINE [Concomitant]
     Indication: THYROID DISORDER
  6. CALCITRIOL [Concomitant]
     Indication: BLOOD CALCIUM DECREASED
  7. ESTRADIOL [Concomitant]
     Indication: HORMONE REPLACEMENT THERAPY
  8. ASPIRIN [Concomitant]
     Indication: PRODUCT USED FOR UNKNOWN INDICATION
  9. PROTONIX [Concomitant]
     Indication: GASTROOESOPHAGEAL REFLUX DISEASE
  10. PROBIOTICS [Concomitant]
     Indication: PROPHYLAXIS

REACTIONS (4)
  - Pain in extremity [Not Recovered/Not Resolved]
  - Pain in extremity [Not Recovered/Not Resolved]
  - Local swelling [Not Recovered/Not Resolved]
  - Local swelling [Not Recovered/Not Resolved]
